FAERS Safety Report 9002347 (Version 1)
Quarter: 2013Q1

REPORT INFORMATION
  Report Type: Spontaneous
  Country: FR (occurrence: FR)
  Receive Date: 20130107
  Receipt Date: 20130107
  Transmission Date: 20140127
  Serious: Yes (Hospitalization, Other)
  Sender: FDA-Public Use
  Company Number: PHHY2012FR122231

PATIENT
  Age: 53 Year
  Sex: Male
  Weight: 70 kg

DRUGS (4)
  1. VOLTARENE LP [Suspect]
     Indication: MYALGIA
     Dosage: 75 MG, UNK
     Route: 048
     Dates: start: 201211, end: 20121207
  2. TRUVADA [Concomitant]
  3. ISENTRESS [Concomitant]
  4. BACTRIM [Concomitant]

REACTIONS (7)
  - Abscess limb [Recovering/Resolving]
  - Superinfection [Recovered/Resolved]
  - Muscle abscess [Not Recovered/Not Resolved]
  - Renal tubular necrosis [Unknown]
  - Condition aggravated [Unknown]
  - Toxicity to various agents [Unknown]
  - Renal failure acute [Not Recovered/Not Resolved]
